FAERS Safety Report 16997019 (Version 1)
Quarter: 2019Q4

REPORT INFORMATION
  Report Type: Spontaneous
  Country: US (occurrence: US)
  Receive Date: 20190924
  Receipt Date: 20190924
  Transmission Date: 20200122
  Serious: No
  Sender: FDA-Public Use
  Company Number: None

PATIENT

DRUGS (2)
  1. CLOMIPRAMINE HCL [Suspect]
     Active Substance: CLOMIPRAMINE
  2. CLOMIPHENE [Suspect]
     Active Substance: CLOMIPHENE

REACTIONS (5)
  - Product dispensing error [None]
  - Wrong product administered [None]
  - General physical condition abnormal [None]
  - Product name confusion [None]
  - Emotional disorder [None]
